FAERS Safety Report 7845508-1 (Version None)
Quarter: 2011Q4

REPORT INFORMATION
  Report Type: 
  Country: None (occurrence: None)
  Receive Date: 20111025
  Receipt Date: 20111012
  Transmission Date: 20120403
  Serious: Yes (Hospitalization, Other)
  Sender: FDA-Public Use
  Company Number: US-BAYER-2011-052520

PATIENT
  Sex: Female
  Weight: 82 kg

DRUGS (10)
  1. YASMIN [Suspect]
     Dosage: UNK
     Dates: start: 20050101, end: 20090101
  2. ALBUTEROL [Concomitant]
     Dosage: UNK UNK, PRN
     Dates: start: 20020101
  3. BENTYL [Concomitant]
     Dosage: 20 MG, QD
  4. DOMPERIDONE [Concomitant]
     Indication: GASTRIC EMPTYING STUDY
     Dosage: 20 MG, BID
  5. IBUPROFEN [Concomitant]
  6. CEPHALEXIN [Concomitant]
  7. SYMBICORT [Concomitant]
     Dosage: UNK UNK, PRN
     Dates: start: 20050101
  8. DROSPIRENONE AND ETHINYL ESTRADIOL [Suspect]
     Indication: CONTRACEPTION
     Dosage: UNK
     Dates: start: 20050101, end: 20090101
  9. DROSPIRENONE AND ETHINYL ESTRADIOL [Suspect]
     Indication: CYST
  10. ADVAIR DISKUS 100/50 [Concomitant]
     Dosage: UNK UNK, PRN
     Dates: start: 20050101

REACTIONS (4)
  - NEPHROLITHIASIS [None]
  - GALLBLADDER DISORDER [None]
  - PAIN [None]
  - CHOLECYSTITIS [None]
